FAERS Safety Report 14194559 (Version 2)
Quarter: 2018Q1

REPORT INFORMATION
  Report Type: Spontaneous
  Country: US (occurrence: US)
  Receive Date: 20171116
  Receipt Date: 20180119
  Transmission Date: 20180508
  Serious: Yes (Hospitalization)
  Sender: FDA-Public Use
  Company Number: US-PFIZER INC-2017492641

PATIENT
  Age: 70 Year
  Sex: Female

DRUGS (4)
  1. LIDOCAINE HCL [Suspect]
     Active Substance: LIDOCAINE HYDROCHLORIDE
     Indication: ANAESTHESIA
     Dosage: 5 ML, UNK
  2. LIDOCAINE HCL [Suspect]
     Active Substance: LIDOCAINE HYDROCHLORIDE
     Dosage: 50 MG, UNK
     Route: 042
  3. LIDOCAINE HCL [Suspect]
     Active Substance: LIDOCAINE HYDROCHLORIDE
     Dosage: UNK
  4. LIDOCAINE HCL [Suspect]
     Active Substance: LIDOCAINE HYDROCHLORIDE
     Dosage: UNK
     Route: 042
     Dates: start: 20170311, end: 20170311

REACTIONS (10)
  - Aphasia [Unknown]
  - Enuresis [Unknown]
  - Facial asymmetry [Unknown]
  - Urinary incontinence [Unknown]
  - Hypertension [Recovered/Resolved]
  - Sedation complication [Recovered/Resolved]
  - Tachycardia [Recovered/Resolved]
  - Tearfulness [Unknown]
  - Dizziness [Unknown]
  - Nausea [Unknown]

NARRATIVE: CASE EVENT DATE: 20171103
